FAERS Safety Report 25344890 (Version 1)
Quarter: 2025Q2

REPORT INFORMATION
  Report Type: Spontaneous
  Country: ES (occurrence: ES)
  Receive Date: 20250522
  Receipt Date: 20250522
  Transmission Date: 20250717
  Serious: Yes (Death, Hospitalization, Other)
  Sender: BRISTOL-MYERS SQUIBB COMPANY
  Company Number: None

PATIENT
  Age: 85 Year
  Sex: Female

DRUGS (2)
  1. REVLIMID [Suspect]
     Active Substance: LENALIDOMIDE
     Indication: Splenic marginal zone lymphoma
     Dosage: 100MG PER DAY FOR 3 WEEKS AND 1 WEEK OFF? 21 CAPSULES
     Route: 048
     Dates: start: 20240626, end: 20250325
  2. RITUXIMAB [Suspect]
     Active Substance: RITUXIMAB
     Indication: Splenic marginal zone lymphoma
     Dosage: 1400MG EVERY 21 DAYS?2 VIALS OF 10 ML
     Route: 058
     Dates: start: 20240722, end: 20250325

REACTIONS (3)
  - Pancytopenia [Recovered/Resolved]
  - Endocarditis [Fatal]
  - Septic embolus [Fatal]

NARRATIVE: CASE EVENT DATE: 20250325
